FAERS Safety Report 7888039-5 (Version None)
Quarter: 2011Q4

REPORT INFORMATION
  Report Type: 
  Country: None (occurrence: None)
  Receive Date: 20111103
  Receipt Date: 20111024
  Transmission Date: 20120403
  Serious: Yes (Other)
  Sender: FDA-Public Use
  Company Number: CA-JNJFOC-20111011231

PATIENT
  Sex: Female
  Weight: 49 kg

DRUGS (6)
  1. REMICADE [Suspect]
     Route: 042
     Dates: start: 20111021
  2. IMURAN [Concomitant]
  3. ALL OTHER THERAPEUTIC PRODUCT [Concomitant]
  4. REMICADE [Suspect]
     Indication: COLITIS ULCERATIVE
     Dosage: ^LOADING DOSE^
     Route: 042
     Dates: start: 20110919
  5. METFORMIN HCL [Concomitant]
  6. LIPITOR [Concomitant]

REACTIONS (2)
  - HYPOAESTHESIA [None]
  - JOINT SWELLING [None]
